FAERS Safety Report 7189906-0 (Version None)
Quarter: 2010Q4

REPORT INFORMATION
  Report Type: 
  Country: None (occurrence: None)
  Receive Date: 20101123
  Receipt Date: 20100930
  Transmission Date: 20110411
  Serious: No
  Sender: FDA-Public Use
  Company Number: 019668

PATIENT
  Sex: Female
  Weight: 81.7 kg

DRUGS (4)
  1. CIMZIA [Suspect]
     Indication: CROHN'S DISEASE
     Dosage: (2 SYRINGE, EVERY 2 WEEKS FOR THREE DOSES, THEN EVERY 4 WEEKS AFTER THAT SUBCUTANEOUS)
     Route: 058
     Dates: start: 20100904
  2. CYMBALTA [Concomitant]
  3. ATIVAN [Concomitant]
  4. TRILEPTAL [Concomitant]

REACTIONS (3)
  - DIARRHOEA [None]
  - INFLUENZA LIKE ILLNESS [None]
  - VOMITING [None]
